FAERS Safety Report 19514768 (Version 3)
Quarter: 2021Q3

REPORT INFORMATION
  Report Type: Spontaneous
  Country: CA (occurrence: CA)
  Receive Date: 20210709
  Receipt Date: 20210902
  Transmission Date: 20211014
  Serious: No
  Sender: FDA-Public Use
  Company Number: CA-PFIZER INC-2021689495

PATIENT
  Age: 74 Year
  Sex: Female

DRUGS (1)
  1. FRAGMIN [Suspect]
     Active Substance: DALTEPARIN SODIUM
     Dosage: UNK

REACTIONS (3)
  - Wrong technique in device usage process [Unknown]
  - Syringe issue [Unknown]
  - Device leakage [Unknown]
